FAERS Safety Report 7151323-7 (Version None)
Quarter: 2010Q4

REPORT INFORMATION
  Report Type: 
  Country: None (occurrence: None)
  Receive Date: 20101126
  Receipt Date: 20101115
  Transmission Date: 20110411
  Serious: Yes (Hospitalization, Other)
  Sender: FDA-Public Use
  Company Number: 2010P1002629

PATIENT
  Sex: Male
  Weight: 88.4514 kg

DRUGS (13)
  1. ALLOPURINOL [Suspect]
     Dates: end: 20100422
  2. COLCHICINE 0.6 MG (VISION) (NO PREF. NAME) [Suspect]
     Indication: GOUT
     Dosage: 0.6 MG; BID; PO
     Route: 048
     Dates: start: 20100408, end: 20100430
  3. ULORIC (FEBUXOSTAT) 40 MG (NO PREF. NAME) [Suspect]
     Dates: start: 20100423, end: 20100425
  4. METOLAZONE [Concomitant]
  5. FUROSEMIDE [Concomitant]
  6. POTASSIUM CHLORIDE [Concomitant]
  7. PLAVIX [Concomitant]
  8. ASPIRIN [Concomitant]
  9. MULTI-VITAMIN [Concomitant]
  10. FOLIC ACID [Concomitant]
  11. VITAMIN B-12 [Concomitant]
  12. VITAMIN B6 [Concomitant]
  13. LORATADINE [Concomitant]

REACTIONS (6)
  - ABASIA [None]
  - FEELING ABNORMAL [None]
  - GOUT [None]
  - MOBILITY DECREASED [None]
  - MUSCULAR WEAKNESS [None]
  - RASH [None]
